FAERS Safety Report 9832807 (Version 1)
Quarter: 2014Q1

REPORT INFORMATION
  Report Type: Spontaneous
  Country: JP (occurrence: JP)
  Receive Date: 20140121
  Receipt Date: 20140121
  Transmission Date: 20141002
  Serious: Yes (Hospitalization)
  Sender: FDA-Public Use
  Company Number: JP-GLAXOSMITHKLINE-B0961252A

PATIENT
  Age: 65 Year
  Sex: Female

DRUGS (2)
  1. HEPSERA 10 [Suspect]
     Indication: CHRONIC HEPATITIS B
     Route: 048
     Dates: start: 2006
  2. ZEFIX 100 [Suspect]
     Indication: CHRONIC HEPATITIS B
     Route: 048
     Dates: start: 2003

REACTIONS (14)
  - Osteomalacia [Unknown]
  - Renal tubular disorder [Unknown]
  - Pain [Unknown]
  - Blood alkaline phosphatase increased [Unknown]
  - Hypophosphataemia [Unknown]
  - Hypokalaemia [Unknown]
  - Rib fracture [Unknown]
  - Quadriplegia [Unknown]
  - Blood potassium increased [Unknown]
  - Blood phosphorus increased [Unknown]
  - Blood uric acid increased [Unknown]
  - Pelvic fracture [Unknown]
  - Deformity thorax [Unknown]
  - Tubulointerstitial nephritis [Unknown]
